FAERS Safety Report 4467880-5 (Version None)
Quarter: 2004Q4

REPORT INFORMATION
  Report Type: 
  Country: None (occurrence: None)
  Receive Date: 20041001
  Receipt Date: 20040915
  Transmission Date: 20050328
  Serious: Yes (Other)
  Sender: FDA-Public Use
  Company Number: B0345618A

PATIENT
  Age: 80 Year
  Sex: Male
  Weight: 91.2184 kg

DRUGS (17)
  1. AVANDIA [Suspect]
     Indication: DIABETES MELLITUS NON-INSULIN-DEPENDENT
     Dosage: 4 MG /TWICE PER DAY
     Dates: start: 20001101
  2. PIOGLITAZONE HCL [Suspect]
     Indication: DIABETES MELLITUS NON-INSULIN-DEPENDENT
     Dosage: 30 MG / PER DAY
  3. HUMAN INSULIN [Concomitant]
  4. INT./LONG-ACTING INSULIN [Concomitant]
  5. LANSOPRAZOLE [Concomitant]
  6. ASPIRIN [Concomitant]
  7. SALMETEROL XINAFOATE [Concomitant]
  8. FLUTICASONE PROPIONATE [Concomitant]
  9. SALBUTAMOL SULPHATE [Concomitant]
  10. SIMVASTATIN [Concomitant]
  11. LISINOPRIL [Concomitant]
  12. GABAPENTIN [Concomitant]
  13. DILITAZEM HYDROCHLORIDE [Concomitant]
  14. FLUOXETINE [Concomitant]
  15. FRUSEMIDE [Concomitant]
  16. METOLAZONE [Concomitant]
  17. HUMAN INSULIN [Concomitant]

REACTIONS (3)
  - CARDIAC FAILURE CONGESTIVE [None]
  - DIASTOLIC DYSFUNCTION [None]
  - WEIGHT INCREASED [None]
